FAERS Safety Report 9612402 (Version 1)
Quarter: 2013Q4

REPORT INFORMATION
  Report Type: Spontaneous
  Country: US (occurrence: US)
  Receive Date: 20131010
  Receipt Date: 20131010
  Transmission Date: 20140711
  Serious: No
  Sender: FDA-Public Use
  Company Number: US-ASTELLAS-2013US008894

PATIENT
  Age: 63 Year
  Sex: Female

DRUGS (4)
  1. MYRBETRIQ [Suspect]
     Indication: CYSTITIS INTERSTITIAL
     Dosage: 25 MG, UID/QD
     Route: 048
     Dates: start: 20130708, end: 20130812
  2. MYRBETRIQ [Suspect]
     Indication: HYPERTONIC BLADDER
  3. VESICARE [Concomitant]
     Indication: CYSTITIS INTERSTITIAL
     Dosage: 10 MG, UID/QD
     Route: 048
     Dates: end: 201307
  4. VESICARE [Concomitant]
     Indication: HYPERTONIC BLADDER

REACTIONS (2)
  - Drug ineffective for unapproved indication [Unknown]
  - Drug ineffective [Unknown]
